FAERS Safety Report 11699273 (Version 1)
Quarter: 2015Q4

REPORT INFORMATION
  Report Type: Spontaneous
  Country: US (occurrence: US)
  Receive Date: 20151104
  Receipt Date: 20151104
  Transmission Date: 20160304
  Serious: Yes (Death, Other)
  Sender: FDA-Public Use
  Company Number: US-ACTELION-A-US2015-126683

PATIENT
  Age: 71 Year
  Sex: Male

DRUGS (8)
  1. ADCIRCA [Concomitant]
     Active Substance: TADALAFIL
  2. DULERA [Concomitant]
     Active Substance: FORMOTEROL FUMARATE DIHYDRATE\MOMETASONE FUROATE
  3. NIFEDIPINE. [Concomitant]
     Active Substance: NIFEDIPINE
     Dosage: 30 MG, UNK
  4. METOPROLOL SUCCINATE. [Concomitant]
     Active Substance: METOPROLOL SUCCINATE
  5. ASPIRIN. [Concomitant]
     Active Substance: ASPIRIN
  6. OPSUMIT [Suspect]
     Active Substance: MACITENTAN
     Indication: PULMONARY ARTERIAL HYPERTENSION
     Dosage: 10 MG, UNK
     Route: 048
     Dates: start: 20141216
  7. TUDORZA PRESSAIR [Concomitant]
     Active Substance: ACLIDINIUM BROMIDE
  8. HUMIRA [Concomitant]
     Active Substance: ADALIMUMAB

REACTIONS (3)
  - Pulmonary fibrosis [Unknown]
  - Death [Fatal]
  - Small cell lung cancer [Unknown]

NARRATIVE: CASE EVENT DATE: 20151022
